FAERS Safety Report 7361234-X (Version None)
Quarter: 2011Q1

REPORT INFORMATION
  Report Type: 
  Country: None (occurrence: None)
  Receive Date: 20110318
  Receipt Date: 20110228
  Transmission Date: 20110831
  Serious: No
  Sender: FDA-Public Use
  Company Number: US-BAYER-2011-022183

PATIENT
  Sex: Male
  Weight: 68 kg

DRUGS (9)
  1. ALEVE (CAPLET) [Suspect]
     Indication: BACK PAIN
     Dosage: 2 DF, QD, BOTTLE COUNT 24S
     Route: 048
     Dates: start: 20110212, end: 20110227
  2. FLOMAX [Concomitant]
  3. METOPROLOL SUCCINATE [Concomitant]
  4. PROSCAR [Concomitant]
  5. ASPIRIN [Concomitant]
     Indication: ISCHAEMIC HEART DISEASE PROPHYLAXIS
  6. PERCOCET [Concomitant]
  7. UNCODEABLE ^UNCLASSIFIABLE^ [Concomitant]
  8. PRILOSEC [Concomitant]
  9. XANAX [Concomitant]

REACTIONS (1)
  - NO ADVERSE EVENT [None]
